FAERS Safety Report 12796258 (Version 1)
Quarter: 2016Q3

REPORT INFORMATION
  Report Type: Spontaneous
  Country: US (occurrence: US)
  Receive Date: 20160929
  Receipt Date: 20160929
  Transmission Date: 20161109
  Serious: No
  Sender: FDA-Public Use
  Company Number: US-INCYTE CORPORATION-2016IN001139

PATIENT
  Sex: Female
  Weight: 63.39 kg

DRUGS (15)
  1. VOLTAREN [Concomitant]
     Active Substance: DICLOFENAC SODIUM
     Indication: PRODUCT USED FOR UNKNOWN INDICATION
     Dosage: 1 %; 4 G, QD AS NEEDED
     Route: 061
  2. FISH OIL [Concomitant]
     Active Substance: FISH OIL
     Indication: PRODUCT USED FOR UNKNOWN INDICATION
     Dosage: 1000 MG, QD
  3. POTASSIUM CITRATE. [Concomitant]
     Active Substance: POTASSIUM CITRATE
     Indication: PRODUCT USED FOR UNKNOWN INDICATION
     Dosage: 10 MEQ DAILY; CURRENTLY TAKING 4 CAPSULES DAILY
     Route: 048
  4. MULTIPLE VITAMINS WITH MINERALS [Concomitant]
     Indication: PRODUCT USED FOR UNKNOWN INDICATION
     Dosage: 1 TABLET DAILY
     Route: 048
  5. ATENOLOL. [Concomitant]
     Active Substance: ATENOLOL
     Indication: PRODUCT USED FOR UNKNOWN INDICATION
     Dosage: 25 MG, BID
     Route: 048
  6. LIPITOR [Concomitant]
     Active Substance: ATORVASTATIN CALCIUM
     Indication: PRODUCT USED FOR UNKNOWN INDICATION
     Dosage: 10 MG NIGHTLY
     Route: 048
  7. LEVOTHYROXINE. [Concomitant]
     Active Substance: LEVOTHYROXINE
     Indication: PRODUCT USED FOR UNKNOWN INDICATION
     Dosage: 112 MCG, QD
     Route: 048
  8. JAKAFI [Suspect]
     Active Substance: RUXOLITINIB
     Dosage: 10 MG, BID
     Route: 048
     Dates: start: 20151203
  9. LASIX [Suspect]
     Active Substance: FUROSEMIDE
     Indication: CAPILLARY LEAK SYNDROME
     Dosage: 40 MG, QD
     Route: 048
  10. TRIAM-HCTZ [Concomitant]
     Indication: PRODUCT USED FOR UNKNOWN INDICATION
     Dosage: 37.5-25 MG; TAKE 1 TABLET DAILY
     Route: 048
  11. POTASSIUM [Concomitant]
     Active Substance: POTASSIUM
     Indication: PRODUCT USED FOR UNKNOWN INDICATION
  12. VENTOLIN HFA [Concomitant]
     Active Substance: ALBUTEROL SULFATE
     Indication: DYSPNOEA
     Dosage: 90 MCG/PUFF; 2 PUFFS EVERY 4 HOURS AS NEEDED
  13. VIACTIV CALCIUM PLUS VITAMIN D + K [Concomitant]
     Indication: PRODUCT USED FOR UNKNOWN INDICATION
     Dosage: 2 TABLETS DAILY
     Route: 048
  14. PLAVIX [Concomitant]
     Active Substance: CLOPIDOGREL BISULFATE
     Indication: PRODUCT USED FOR UNKNOWN INDICATION
     Dosage: 75 MG, QD
     Route: 048
  15. FLONASE [Concomitant]
     Active Substance: FLUTICASONE PROPIONATE
     Indication: PRODUCT USED FOR UNKNOWN INDICATION
     Dosage: 16 G DAILY AS NEEDED
     Route: 045

REACTIONS (25)
  - Musculoskeletal pain [Unknown]
  - Peripheral swelling [Unknown]
  - Chronic kidney disease [Unknown]
  - Hyperlipidaemia [Unknown]
  - Onychomycosis [Unknown]
  - Epistaxis [Unknown]
  - Palpitations [Unknown]
  - Cardiac failure congestive [Unknown]
  - Seborrhoeic keratosis [Unknown]
  - Oedema [Unknown]
  - Eczema nummular [Unknown]
  - Nail dystrophy [Unknown]
  - Sleep apnoea syndrome [Unknown]
  - Glucose tolerance impaired [Unknown]
  - Night sweats [Unknown]
  - Neck pain [Unknown]
  - Anaemia [Unknown]
  - Ear pain [Unknown]
  - Contusion [Unknown]
  - Diarrhoea [Unknown]
  - Headache [Unknown]
  - Raynaud^s phenomenon [Unknown]
  - Acute prerenal failure [Unknown]
  - Abdominal distension [Unknown]
  - Cough [Unknown]
